FAERS Safety Report 25986245 (Version 1)
Quarter: 2025Q4

REPORT INFORMATION
  Report Type: Spontaneous
  Country: US (occurrence: US)
  Receive Date: 20251031
  Receipt Date: 20251031
  Transmission Date: 20260118
  Serious: Yes (Death, Other)
  Sender: NOVO NORDISK
  Company Number: US-NOVOPROD-1547391

PATIENT

DRUGS (1)
  1. OZEMPIC [Suspect]
     Active Substance: SEMAGLUTIDE
     Indication: Product used for unknown indication
     Dosage: UNK
     Dates: start: 2021, end: 202407

REACTIONS (6)
  - Gastrointestinal necrosis [Fatal]
  - Ileus [Fatal]
  - Intestinal ischaemia [Fatal]
  - Colitis ischaemic [Fatal]
  - Clostridium difficile infection [Fatal]
  - Septic shock [Fatal]

NARRATIVE: CASE EVENT DATE: 20240701
